FAERS Safety Report 23912296 (Version 1)
Quarter: 2024Q2

REPORT INFORMATION
  Report Type: Spontaneous
  Country: US (occurrence: US)
  Receive Date: 20240528
  Receipt Date: 20240528
  Transmission Date: 20240717
  Serious: Yes (Other)
  Sender: FDA-Public Use
  Company Number: SUN-20240517-77

PATIENT

DRUGS (1)
  1. LATUDA [Suspect]
     Active Substance: LURASIDONE HYDROCHLORIDE
     Indication: Schizophrenia
     Dosage: 40 MG
     Route: 048
     Dates: start: 201503

REACTIONS (14)
  - Tardive dyskinesia [Unknown]
  - Oral discomfort [Unknown]
  - Bruxism [Unknown]
  - Blood cholesterol increased [Unknown]
  - Speech disorder [Unknown]
  - Tongue discomfort [Unknown]
  - Stomatitis [Unknown]
  - Time perception altered [Unknown]
  - Discomfort [Unknown]
  - Somnolence [Unknown]
  - Drooling [Unknown]
  - Dyskinesia [Unknown]
  - Swollen tongue [Unknown]
  - Product administration error [Unknown]
